FAERS Safety Report 9745755 (Version 1)
Quarter: 2013Q4

REPORT INFORMATION
  Report Type: Spontaneous
  Country: FR (occurrence: FR)
  Receive Date: 20131211
  Receipt Date: 20131211
  Transmission Date: 20140711
  Serious: Yes (Hospitalization)
  Sender: FDA-Public Use
  Company Number: FR-MERCK-1312FRA001020

PATIENT
  Age: 75 Year
  Sex: Male

DRUGS (7)
  1. ZOCOR 20MG [Suspect]
     Dosage: 20 MG, QD
     Route: 048
     Dates: start: 201102, end: 20130926
  2. SEROPLEX [Interacting]
     Dosage: 10 MG, QD
     Route: 048
     Dates: start: 201102, end: 20130926
  3. PREVISCAN [Interacting]
     Dosage: UNK
     Route: 048
     Dates: start: 201102, end: 20130926
  4. TRIATEC (RAMIPRIL) [Concomitant]
     Dosage: 5 MG, QD
     Route: 048
     Dates: start: 201102, end: 20130926
  5. TRIATEC (RAMIPRIL) [Concomitant]
     Dosage: 5 MG, QD
     Route: 048
     Dates: start: 201102, end: 20130926
  6. ZANIDIP [Concomitant]
     Dosage: 10 MG, QD
     Route: 048
     Dates: start: 201102, end: 20130926
  7. BETASERC [Concomitant]
     Dosage: UNK
     Route: 048
     Dates: start: 201102, end: 20130926

REACTIONS (1)
  - Subdural haematoma [Unknown]
